FAERS Safety Report 7501743-3 (Version None)
Quarter: 2011Q2

REPORT INFORMATION
  Report Type: 
  Country: None (occurrence: None)
  Receive Date: 20110523
  Receipt Date: 20110523
  Transmission Date: 20111010
  Serious: Yes (Other)
  Sender: FDA-Public Use
  Company Number: None

PATIENT
  Age: 65 Year
  Sex: Male
  Weight: 111 kg

DRUGS (2)
  1. MORPHINE [Suspect]
     Indication: PROCEDURAL PAIN
     Dosage: 4 MG Q4 HRS PRN INTRAVESICAL
     Route: 043
  2. MORPHINE [Suspect]

REACTIONS (1)
  - AGGRESSION [None]
